FAERS Safety Report 8249811-5 (Version None)
Quarter: 2012Q2

REPORT INFORMATION
  Report Type: 
  Country: None (occurrence: None)
  Receive Date: 20120402
  Receipt Date: 20120326
  Transmission Date: 20120825
  Serious: Yes (Other)
  Sender: FDA-Public Use
  Company Number: PHHY2012BR026731

PATIENT
  Age: 11 Year
  Sex: Male
  Weight: 43 kg

DRUGS (5)
  1. RISPERIDONE [Concomitant]
     Route: 048
  2. RITALIN LA [Suspect]
     Route: 048
  3. AMITRIPTYLINE HCL [Concomitant]
  4. RITALIN [Suspect]
     Route: 048
  5. DEPAKENE [Concomitant]
     Dosage: 1 TABLET IN THE MORNING HALF TABLET AT NIGHT
     Route: 048

REACTIONS (11)
  - ASTHMA [None]
  - INSOMNIA [None]
  - BIPOLAR DISORDER [None]
  - LOGORRHOEA [None]
  - DISTURBANCE IN ATTENTION [None]
  - ONYCHOPHAGIA [None]
  - DRUG INEFFECTIVE [None]
  - ATTENTION DEFICIT/HYPERACTIVITY DISORDER [None]
  - RESTLESSNESS [None]
  - NAIL PICKING [None]
  - ABNORMAL BEHAVIOUR [None]
